FAERS Safety Report 4461745-0 (Version None)
Quarter: 2004Q3

REPORT INFORMATION
  Report Type: 
  Country: None (occurrence: None)
  Receive Date: 20040929
  Receipt Date: 20040917
  Transmission Date: 20050211
  Serious: Yes (Hospitalization)
  Sender: FDA-Public Use
  Company Number: US-JNJFOC-20040404197

PATIENT
  Sex: Female
  Weight: 69.85 kg

DRUGS (2)
  1. DURAGESIC [Suspect]
     Route: 062
     Dates: start: 20040318
  2. DURAGESIC [Suspect]
     Route: 062
     Dates: start: 20040318

REACTIONS (9)
  - ANXIETY [None]
  - APPLICATION SITE BURNING [None]
  - APPLICATION SITE DERMATITIS [None]
  - BLOOD PRESSURE INCREASED [None]
  - CHEST PAIN [None]
  - DYSPNOEA [None]
  - FATIGUE [None]
  - NERVOUSNESS [None]
  - PANIC ATTACK [None]
